FAERS Safety Report 15752254 (Version 1)
Quarter: 2018Q4

REPORT INFORMATION
  Report Type: Other
  Country: CA (occurrence: CA)
  Receive Date: 20181221
  Receipt Date: 20181221
  Transmission Date: 20190205
  Serious: Yes (Other)
  Sender: FDA-Public Use
  Company Number: CA-PFIZER INC-2018521690

PATIENT
  Age: 65 Year
  Sex: Female

DRUGS (4)
  1. DEXTROSE. [Suspect]
     Active Substance: DEXTROSE
     Indication: ELECTROCARDIOGRAM QRS COMPLEX PROLONGED
     Dosage: 5 %, UNK
     Route: 065
  2. LORAZEPAM. [Concomitant]
     Active Substance: LORAZEPAM
     Indication: AGITATION
     Dosage: UNK
     Route: 065
  3. POTASSIUM CHLORIDE. [Suspect]
     Active Substance: POTASSIUM CHLORIDE
     Dosage: UNK
     Route: 065
  4. SODIUM BICARBONATE. [Suspect]
     Active Substance: SODIUM BICARBONATE
     Dosage: UNK
     Route: 065

REACTIONS (1)
  - Electrocardiogram QRS complex prolonged [Recovered/Resolved]
